FAERS Safety Report 10007237 (Version 1)
Quarter: 2014Q1

REPORT INFORMATION
  Report Type: Spontaneous
  Country: US (occurrence: US)
  Receive Date: 20140313
  Receipt Date: 20140313
  Transmission Date: 20141002
  Serious: Yes (Other)
  Sender: FDA-Public Use
  Company Number: US-WATSON-2014-04213

PATIENT
  Age: 65 Year
  Sex: Male

DRUGS (3)
  1. METHYLPREDNISOLONE [Suspect]
     Indication: PRODUCT USED FOR UNKNOWN INDICATION
     Dosage: UNK
     Route: 008
     Dates: start: 20120507, end: 20120507
  2. METHYLPREDNISOLONE [Suspect]
     Dosage: UNK
     Route: 008
     Dates: start: 20120716, end: 20120716
  3. METHYLPREDNISOLONE [Suspect]
     Dosage: UNK
     Route: 008
     Dates: start: 20120904, end: 20120904

REACTIONS (2)
  - Meningitis fungal [Recovered/Resolved]
  - Transmission of an infectious agent via product [Unknown]
